FAERS Safety Report 6692110-3 (Version None)
Quarter: 2010Q2

REPORT INFORMATION
  Report Type: 
  Country: None (occurrence: None)
  Receive Date: 20100422
  Receipt Date: 20090302
  Transmission Date: 20101027
  Serious: No
  Sender: FDA-Public Use
  Company Number: US-ASTRAZENECA-2009UW05589

PATIENT
  Sex: Male

DRUGS (1)
  1. TOPROL-XL [Suspect]
     Route: 048

REACTIONS (6)
  - CARDIAC FLUTTER [None]
  - FALL [None]
  - GAIT DISTURBANCE [None]
  - HEADACHE [None]
  - LETHARGY [None]
  - PALPITATIONS [None]
